FAERS Safety Report 8106003 (Version 3)
Quarter: 2013Q4

REPORT INFORMATION
  Report Type: Spontaneous
  Country: US (occurrence: US)
  Receive Date: 20110825
  Receipt Date: 20131127
  Transmission Date: 20140711
  Serious: Yes (Hospitalization, Other)
  Sender: FDA-Public Use
  Company Number: US-BAYER-2011-075533

PATIENT
  Sex: Female
  Weight: 52.15 kg

DRUGS (9)
  1. YAZ [Suspect]
     Indication: CONTRACEPTION
     Dosage: UNK
     Dates: start: 2003, end: 2007
  2. YASMIN [Suspect]
     Indication: CONTRACEPTION
     Dosage: UNK
     Dates: start: 2003, end: 2007
  3. NAPROXEN SODIUM [Concomitant]
     Dosage: 500 MG, UNK
  4. CIPRODEX [Concomitant]
  5. PALGIC [CARBINOXAMINE MALEATE] [Concomitant]
     Dosage: 4 MG, UNK
  6. FLONASE [Concomitant]
     Dosage: 0.05%
     Route: 045
  7. DYTAN [Concomitant]
     Dosage: 25 MG, UNK
  8. CIMETIDINE [Concomitant]
     Dosage: 400 MG, UNK
  9. GENTAMICIN [Concomitant]
     Dosage: 3 MG/ML

REACTIONS (2)
  - Gallbladder injury [None]
  - Cholelithiasis [None]
